FAERS Safety Report 5491891-4 (Version None)
Quarter: 2007Q4

REPORT INFORMATION
  Report Type: 
  Country: None (occurrence: None)
  Receive Date: 20071022
  Receipt Date: 20071009
  Transmission Date: 20080405
  Serious: Yes (Death)
  Sender: FDA-Public Use
  Company Number: JP-JNJFOC-20071004191

PATIENT
  Age: 70 Year
  Sex: Female

DRUGS (5)
  1. LEVOFLOXACIN [Suspect]
     Indication: PULMONARY TUBERCULOSIS
     Route: 065
  2. ISONIAZID [Suspect]
     Indication: PULMONARY TUBERCULOSIS
     Route: 065
  3. RIFAMPICIN [Suspect]
     Indication: PULMONARY TUBERCULOSIS
     Route: 065
  4. ETHAMBUTOL HCL [Suspect]
     Indication: PULMONARY TUBERCULOSIS
     Route: 065
  5. ETHIONAMIDE [Suspect]
     Indication: PULMONARY TUBERCULOSIS
     Route: 065

REACTIONS (1)
  - AUTOIMMUNE HEPATITIS [None]
